FAERS Safety Report 5587150-1 (Version None)
Quarter: 2008Q1

REPORT INFORMATION
  Report Type: 
  Country: None (occurrence: None)
  Receive Date: 20080107
  Receipt Date: 20071221
  Transmission Date: 20080703
  Serious: Yes (Hospitalization, Other)
  Sender: FDA-Public Use
  Company Number: S07-PRT-06345-01

PATIENT
  Age: 60 Year
  Sex: Female

DRUGS (2)
  1. ESCITALOPRAM [Suspect]
     Dosage: 10 MG QD PO
     Route: 048
     Dates: start: 20070901, end: 20071119
  2. IBUPROFEN [Concomitant]

REACTIONS (7)
  - ACQUIRED HAEMOPHILIA [None]
  - BLOOD THROMBOPLASTIN DECREASED [None]
  - GINGIVAL BLEEDING [None]
  - HAEMATOMA [None]
  - HAEMATURIA [None]
  - PROTHROMBIN LEVEL ABNORMAL [None]
  - TREATMENT NONCOMPLIANCE [None]
